FAERS Safety Report 4963376-2 (Version None)
Quarter: 2006Q1

REPORT INFORMATION
  Report Type: 
  Country: None (occurrence: None)
  Receive Date: 20060329
  Receipt Date: 20060320
  Transmission Date: 20060701
  Serious: Yes (Hospitalization, Disabling, Other)
  Sender: FDA-Public Use
  Company Number: 2006039254

PATIENT
  Age: 74 Year
  Sex: Male
  Weight: 100.6985 kg

DRUGS (2)
  1. NORVASC [Suspect]
     Indication: ILL-DEFINED DISORDER
     Dosage: 2 TABS MORNING AND 1 TAB EVENING (5 MG, 3 IN 1 D), ORAL
     Route: 048
  2. ACTOS [Concomitant]

REACTIONS (2)
  - CEREBROVASCULAR ACCIDENT [None]
  - VISUAL ACUITY REDUCED [None]
